FAERS Safety Report 19753282 (Version 1)
Quarter: 2021Q3

REPORT INFORMATION
  Report Type: Spontaneous
  Country: US (occurrence: US)
  Receive Date: 20210826
  Receipt Date: 20210826
  Transmission Date: 20211014
  Serious: Yes (Other)
  Sender: FDA-Public Use
  Company Number: None

PATIENT
  Sex: Male
  Weight: 83.3 kg

DRUGS (8)
  1. BENZONATATE 100MG PO Q8H [Concomitant]
     Dates: start: 20210815
  2. VITAMIN C 500MG DAILY [Concomitant]
     Dates: start: 20210815
  3. ZINC SULFATE 220MG PO DAILY [Concomitant]
     Dates: start: 20210815
  4. VITAMIN D3 1000 UNITS DAILY [Concomitant]
     Dates: start: 20210815
  5. DEXAMETHASONE 6MG PO DAILY [Concomitant]
     Active Substance: DEXAMETHASONE
     Dates: start: 20210814
  6. ENOXAPARIN 30MG SUBQ Q12H [Concomitant]
     Dates: start: 20210815
  7. ADVAIR HFA 115/21 2 PUFF BID [Concomitant]
     Dates: start: 20210815
  8. BARICITINIB. [Suspect]
     Active Substance: BARICITINIB
     Indication: COVID-19
     Route: 048
     Dates: start: 20210821

REACTIONS (2)
  - Aspartate aminotransferase increased [None]
  - Alanine aminotransferase increased [None]
